FAERS Safety Report 4394390-6 (Version None)
Quarter: 2004Q3

REPORT INFORMATION
  Report Type: 
  Country: None (occurrence: None)
  Receive Date: 20040709
  Receipt Date: 20040709
  Transmission Date: 20050211
  Serious: Yes (Death)
  Sender: FDA-Public Use
  Company Number: None

PATIENT
  Sex: Male
  Weight: 68.4932 kg

DRUGS (5)
  1. AVASTIN [Suspect]
     Indication: COLON CANCER
     Dosage: Q2 WEEKS INTRAVENOUS
     Route: 042
     Dates: start: 20040308, end: 20040614
  2. AVASTIN [Suspect]
     Indication: METASTASES TO LIVER
     Dosage: Q2 WEEKS INTRAVENOUS
     Route: 042
     Dates: start: 20040308, end: 20040614
  3. FLUOROURACIL [Concomitant]
  4. LEUCOVORIN CALCIUM [Concomitant]
  5. OXYPLATINUM [Concomitant]

REACTIONS (2)
  - EPISTAXIS [None]
  - RESPIRATORY FAILURE [None]
